FAERS Safety Report 9422163 (Version 1)
Quarter: 2013Q3

REPORT INFORMATION
  Report Type: Report from Study
  Country: US (occurrence: US)
  Receive Date: 20130726
  Receipt Date: 20130726
  Transmission Date: 20140515
  Serious: Yes (Hospitalization, Other)
  Sender: FDA-Public Use
  Company Number: US-PURDUE-USA-2013-0104786

PATIENT
  Age: 76 Year
  Sex: Female
  Weight: 60.77 kg

DRUGS (15)
  1. DILAUDID TABLET [Suspect]
     Indication: PAIN
     Dosage: 4 MG, PRN
     Dates: start: 20120312
  2. PANOBINOSTAT [Suspect]
     Indication: PLASMA CELL MYELOMA
     Dosage: 5 MG, DAILY
     Route: 048
     Dates: start: 20130304, end: 20130308
  3. PANOBINOSTAT [Suspect]
     Dosage: 20 MG, DAILY
     Route: 048
     Dates: start: 20130304, end: 20130401
  4. PANOBINOSTAT [Suspect]
     Dosage: UNK
     Route: 048
     Dates: start: 20130401
  5. CARFILZOMIB [Suspect]
     Indication: PLASMA CELL MYELOMA
     Dosage: 33 MG, DAILY
     Route: 042
     Dates: start: 20130304, end: 20130305
  6. CARFILZOMIB [Suspect]
     Dosage: UNK
     Route: 042
     Dates: start: 20130401
  7. FENTANYL [Suspect]
     Indication: PRODUCT USED FOR UNKNOWN INDICATION
     Dosage: UNK
     Dates: start: 20120502
  8. COUMADIN                           /00014802/ [Concomitant]
     Dosage: UNK
     Dates: start: 20120101, end: 20130311
  9. BACTRIM DS [Concomitant]
     Dosage: UNK
     Dates: start: 20130225
  10. FAMVIR                             /01226201/ [Concomitant]
     Dosage: UNK
     Dates: start: 20130304
  11. PENCICLOVIR [Concomitant]
     Dosage: UNK
     Dates: start: 20130304
  12. DIFLUCAN [Concomitant]
     Dosage: UNK
     Dates: start: 20130304
  13. NEURONTIN [Concomitant]
     Dosage: UNK
     Dates: start: 20111107
  14. PANTOPRAZOLE [Concomitant]
     Dosage: UNK
     Dates: start: 20130116
  15. LIDODERM [Concomitant]
     Dosage: UNK
     Dates: start: 20121107

REACTIONS (5)
  - Anaemia [Recovered/Resolved]
  - Adrenal insufficiency [Unknown]
  - Dehydration [Recovered/Resolved]
  - Confusional state [Recovering/Resolving]
  - Hypotension [Recovered/Resolved]
